FAERS Safety Report 8905548 (Version 1)
Quarter: 2012Q4

REPORT INFORMATION
  Report Type: 
  Country: US (occurrence: US)
  Receive Date: 20121113
  Receipt Date: 20121113
  Transmission Date: 20130627
  Serious: Yes (Other)
  Sender: FDA-Public Use
  Company Number: US-PFIZER INC-2012283289

PATIENT
  Age: 49 Year
  Sex: Female
  Weight: 65.76 kg

DRUGS (5)
  1. LYRICA [Suspect]
     Indication: NECK PAIN
     Dosage: 100 mg, 3x/day
     Route: 048
     Dates: start: 2010
  2. LYRICA [Suspect]
     Indication: BACK PAIN
     Dosage: UNK
     Route: 048
  3. DETROL LA [Suspect]
     Indication: BLADDER DISORDER
     Dosage: 4 mg, 1x/day
     Route: 048
     Dates: start: 201209
  4. DETROL LA [Suspect]
     Dosage: UNK
     Route: 048
  5. PROPRANOLOL [Concomitant]
     Dosage: UNK

REACTIONS (1)
  - Breast cancer [Unknown]
